FAERS Safety Report 5936118-1 (Version None)
Quarter: 2008Q4

REPORT INFORMATION
  Report Type: 
  Country: None (occurrence: None)
  Receive Date: 20081028
  Receipt Date: 20081015
  Transmission Date: 20090506
  Serious: Yes (Disabling)
  Sender: FDA-Public Use
  Company Number: 2007-159651-NL

PATIENT
  Age: 11 Month
  Sex: Female

DRUGS (19)
  1. PANCURONIUM BROMIDE [Suspect]
     Indication: HYPOTONIA
     Dosage: INTRAVENOUS DRIP
     Route: 041
     Dates: start: 20040714, end: 20040714
  2. PANCURONIUM BROMIDE [Suspect]
     Indication: HYPOTONIA
     Dosage: INTRAVENOUS DRIP
     Route: 041
     Dates: start: 20040714, end: 20040717
  3. PANCURONIUM BROMIDE [Suspect]
     Indication: HYPOTONIA
     Dosage: INTRAVENOUS DRIP
     Route: 041
     Dates: start: 20040718, end: 20040728
  4. DOPAMINE HYDROCHLORIDE [Concomitant]
  5. DOBUTAMINE HYDROCHLORIDE [Concomitant]
  6. FENTANYL CITRATE [Concomitant]
  7. CHLORPROMAZINE HCL [Concomitant]
  8. PROSTAGLANDIN F2 ALPHA [Concomitant]
  9. OLPRINONE HYDROCHLORIDE [Concomitant]
  10. NITROGLYCERIN [Concomitant]
  11. GABEXATE MESILATE [Concomitant]
  12. FUROSEMIDE [Concomitant]
  13. DEXAMETHASONE TAB [Concomitant]
  14. MENATETRENONE [Concomitant]
  15. FAMOTIDINE [Concomitant]
  16. ULINASTATIN [Concomitant]
  17. CEFMETAZOLE SODIUM [Concomitant]
  18. VITAMEDIN INTRAVENOUS [Concomitant]
  19. METHYLPREDNISOLONE SODIUM SUCCINATE [Concomitant]

REACTIONS (4)
  - DEAFNESS NEUROSENSORY [None]
  - DIAPHRAGMATIC HERNIA [None]
  - DISEASE RECURRENCE [None]
  - GASTROINTESTINAL PERFORATION [None]
